FAERS Safety Report 8203322-1 (Version None)
Quarter: 2012Q1

REPORT INFORMATION
  Report Type: 
  Country: None (occurrence: None)
  Receive Date: 20120312
  Receipt Date: 20120302
  Transmission Date: 20120608
  Serious: Yes (Other)
  Sender: FDA-Public Use
  Company Number: JP-ASTRAZENECA-2012SE07848

PATIENT
  Age: 55 Year
  Sex: Female

DRUGS (3)
  1. OMEPRAZOLE [Suspect]
     Route: 048
     Dates: start: 20120125, end: 20120202
  2. LORATADINE [Concomitant]
     Route: 048
     Dates: start: 20120110
  3. AMOBAN [Concomitant]
     Route: 048

REACTIONS (2)
  - GENITAL HAEMORRHAGE [None]
  - UTERINE LEIOMYOMA [None]
